FAERS Safety Report 10645821 (Version 1)
Quarter: 2014Q4

REPORT INFORMATION
  Report Type: Report from Study
  Country: US (occurrence: US)
  Receive Date: 20141211
  Receipt Date: 20141211
  Transmission Date: 20150529
  Serious: Yes (Other)
  Sender: FDA-Public Use
  Company Number: US-ROCHE-1504571

PATIENT
  Age: 48 Year
  Sex: Female
  Weight: 80.9 kg

DRUGS (9)
  1. LHRH AGONIST [Suspect]
     Active Substance: UNSPECIFIED INGREDIENT
     Indication: BREAST CANCER
     Dosage: PREMENOPAUSAL: STARTING DAY 1 OF CYCLE 1 AND EVERY 28 DAYS UNTIL SURGERY
     Route: 065
     Dates: start: 20141002
  2. TRASTUZUMAB [Suspect]
     Active Substance: TRASTUZUMAB
     Indication: BREAST CANCER
     Dosage: CYCLE 1: OVER 90 MIN ON DAY 1
     Route: 042
     Dates: start: 20141002
  3. DOCETAXEL. [Suspect]
     Active Substance: DOCETAXEL
     Indication: BREAST CANCER
     Dosage: OVER 60 MIN ON DAY 1 Q3 WEEKS?LAST DOSE ADMINISTERED ON 02/OCT/2014
     Route: 042
     Dates: start: 20141002
  4. PERTUZUMAB [Suspect]
     Active Substance: PERTUZUMAB
     Dosage: CYCLE 2-6: OVER 30-60 MIN ON DAY 1 Q3 WEEKS?LAST DOSE ADMINISTERED ON 02/OCT/2014
     Route: 042
  5. TRASTUZUMAB [Suspect]
     Active Substance: TRASTUZUMAB
     Dosage: CYCLE 2-6:OVER 30-60 MIN ON DAY 1 Q3WEEKS
     Route: 042
  6. DIOVAN [Suspect]
     Active Substance: VALSARTAN
     Indication: BREAST CANCER
     Route: 065
  7. SYNTHROID [Concomitant]
     Active Substance: LEVOTHYROXINE SODIUM
  8. PERTUZUMAB [Suspect]
     Active Substance: PERTUZUMAB
     Indication: BREAST CANCER
     Dosage: CYCLE 1:OVER 60 MIN ON DAY 1
     Route: 042
     Dates: start: 20141002
  9. CARBOPLATIN. [Suspect]
     Active Substance: CARBOPLATIN
     Indication: BREAST CANCER
     Dosage: AUC=6 MG/ML/MIN OVER 30-60MIN ON DAY 1 Q3WEEKS?LAST DOSE ADMINISTERED ON 02/OCT/2014
     Route: 042
     Dates: start: 20141002

REACTIONS (1)
  - Hypertension [Recovered/Resolved]

NARRATIVE: CASE EVENT DATE: 20141014
